FAERS Safety Report 8963069 (Version 3)
Quarter: 2013Q1

REPORT INFORMATION
  Report Type: Spontaneous
  Country: JP (occurrence: JP)
  Receive Date: 20121214
  Receipt Date: 20130307
  Transmission Date: 20140127
  Serious: Yes (Life-Threatening)
  Sender: FDA-Public Use
  Company Number: JP-009507513-1212JPN004927

PATIENT
  Age: 55 Year
  Sex: Male

DRUGS (7)
  1. GLACTIV [Suspect]
     Indication: TYPE 2 DIABETES MELLITUS
     Dosage: 50 MG, QD
     Route: 048
     Dates: start: 20110317, end: 20121127
  2. AMLODIPINE BESYLATE [Concomitant]
     Dosage: UNK
     Dates: start: 20100726
  3. GLUTAMEAL [Concomitant]
  4. IRBETAN [Concomitant]
     Dosage: UNK
     Dates: start: 20100826
  5. GLICLAZIDE [Concomitant]
     Dosage: UNK
     Dates: start: 20120315, end: 20120512
  6. GLICLAZIDE [Concomitant]
     Dosage: UNK
     Dates: start: 20120513
  7. NORVASC [Concomitant]

REACTIONS (1)
  - Adenocarcinoma pancreas [Not Recovered/Not Resolved]
